FAERS Safety Report 24357822 (Version 1)
Quarter: 2024Q3

REPORT INFORMATION
  Report Type: Spontaneous
  Country: US (occurrence: US)
  Receive Date: 20240924
  Receipt Date: 20240924
  Transmission Date: 20241017
  Serious: No
  Sender: VERTEX
  Company Number: US-VERTEX PHARMACEUTICALS-2024-014779

PATIENT
  Sex: Female

DRUGS (1)
  1. ORKAMBI [Suspect]
     Active Substance: IVACAFTOR\LUMACAFTOR
     Indication: Cystic fibrosis
     Dosage: LUMACAFTOR/IVACAFTOR, UNKNOWN
     Route: 048
     Dates: start: 2024

REACTIONS (1)
  - Faecal elastase concentration abnormal [Unknown]

NARRATIVE: CASE EVENT DATE: 20240101
